APPROVED DRUG PRODUCT: LYTGOBI
Active Ingredient: FUTIBATINIB
Strength: 16MG
Dosage Form/Route: TABLET;ORAL
Application: N214801 | Product #002
Applicant: TAIHO ONCOLOGY INC
Approved: Jul 28, 2025 | RLD: Yes | RS: No | Type: RX

PATENTS:
Patent 9108973 | Expires: Feb 13, 2033
Patent 11833151 | Expires: Nov 5, 2039
Patent 10434103 | Expires: Mar 31, 2036

EXCLUSIVITY:
Code: NCE | Date: Sep 30, 2027
Code: ODE* | Date: Sep 30, 2029